FAERS Safety Report 19112087 (Version 1)
Quarter: 2021Q2

REPORT INFORMATION
  Report Type: Spontaneous
  Country: JP (occurrence: JP)
  Receive Date: 20210409
  Receipt Date: 20210409
  Transmission Date: 20210717
  Serious: Yes (Hospitalization)
  Sender: FDA-Public Use
  Company Number: JP-GLAXOSMITHKLINE-JP2021075286

PATIENT

DRUGS (1)
  1. BENLYSTA [Suspect]
     Active Substance: BELIMUMAB
     Dosage: EVERY 4 WEEKS, 5 TIMES IN TOTAL
     Route: 041

REACTIONS (2)
  - Hospitalisation [Not Recovered/Not Resolved]
  - Inappropriate schedule of product administration [Unknown]
